FAERS Safety Report 16267342 (Version 2)
Quarter: 2019Q2

REPORT INFORMATION
  Report Type: Spontaneous
  Country: US (occurrence: US)
  Receive Date: 20190502
  Receipt Date: 20190604
  Transmission Date: 20190711
  Serious: No
  Sender: FDA-Public Use
  Company Number: US-JNJFOC-20190417583

PATIENT
  Sex: Female
  Weight: 44.91 kg

DRUGS (1)
  1. NIZORAL [Suspect]
     Active Substance: KETOCONAZOLE
     Indication: PRODUCT USED FOR UNKNOWN INDICATION
     Route: 061
     Dates: start: 20190312

REACTIONS (7)
  - Application site dryness [Not Recovered/Not Resolved]
  - Drug ineffective [Unknown]
  - Paraesthesia [Unknown]
  - Application site pain [Not Recovered/Not Resolved]
  - Hair texture abnormal [Not Recovered/Not Resolved]
  - Pruritus [Unknown]
  - Hair colour changes [Unknown]

NARRATIVE: CASE EVENT DATE: 2019
